FAERS Safety Report 8446471-5 (Version None)
Quarter: 2012Q2

REPORT INFORMATION
  Report Type: 
  Country: None (occurrence: None)
  Receive Date: 20120618
  Receipt Date: 20120404
  Transmission Date: 20120825
  Serious: No
  Sender: FDA-Public Use
  Company Number: US-TEVA-331947USA

PATIENT
  Sex: Female

DRUGS (3)
  1. OXYCODONE HCL [Concomitant]
     Indication: BACK PAIN
  2. FENTANYL-100 [Concomitant]
     Indication: BACK PAIN
  3. ACTIQ [Suspect]
     Indication: BACK PAIN
     Dosage: 1600 MCG 4/DAY /PRN
     Route: 002
     Dates: start: 20080101

REACTIONS (3)
  - OFF LABEL USE [None]
  - SYSTEMIC LUPUS ERYTHEMATOSUS [None]
  - ROAD TRAFFIC ACCIDENT [None]
